FAERS Safety Report 8902060 (Version 1)
Quarter: 2012Q4

REPORT INFORMATION
  Report Type: 
  Country: FR (occurrence: FR)
  Receive Date: 20121112
  Receipt Date: 20121112
  Transmission Date: 20130627
  Serious: Yes (Hospitalization, Other)
  Sender: FDA-Public Use
  Company Number: PHHY2012FR102676

PATIENT
  Age: 58 Year
  Sex: Male

DRUGS (12)
  1. LEPONEX [Suspect]
     Dosage: 2 DF, QD
     Route: 048
     Dates: start: 20101015
  2. LEPONEX [Suspect]
     Dosage: 4 DF, QD
     Route: 048
     Dates: start: 20101214
  3. LEPONEX [Suspect]
     Dosage: 1.5 DF, QD
     Route: 048
     Dates: start: 201105
  4. LEPONEX [Suspect]
     Dosage: 1 DF, UNK
     Route: 048
     Dates: start: 20110919
  5. LEPONEX [Suspect]
     Dosage: 0.5 DF, UNK
     Route: 048
     Dates: start: 20111206
  6. SEROPLEX [Concomitant]
  7. APOKINON [Concomitant]
  8. VALIUM [Concomitant]
  9. EQUANIL [Concomitant]
  10. SINEMET [Concomitant]
  11. EXELON [Concomitant]
  12. STALEVO [Concomitant]

REACTIONS (7)
  - Psychiatric symptom [Unknown]
  - Hallucination [Unknown]
  - Malaise [Unknown]
  - Suicidal ideation [Unknown]
  - Retinal vein thrombosis [Recovered/Resolved]
  - Visual acuity reduced [Unknown]
  - Somnolence [Unknown]
